FAERS Safety Report 8028582-1 (Version None)
Quarter: 2012Q1

REPORT INFORMATION
  Report Type: 
  Country: None (occurrence: None)
  Receive Date: 20120106
  Receipt Date: 20111127
  Transmission Date: 20120608
  Serious: Yes (Other)
  Sender: FDA-Public Use
  Company Number: US-BAYER-2011-120724

PATIENT
  Age: 31 Year
  Sex: Male

DRUGS (1)
  1. BRONKAID [Suspect]
     Indication: UNEVALUABLE EVENT
     Route: 048

REACTIONS (2)
  - DRUG DEPENDENCE [None]
  - UNEVALUABLE EVENT [None]
